FAERS Safety Report 5580121-0 (Version None)
Quarter: 2008Q1

REPORT INFORMATION
  Report Type: 
  Country: None (occurrence: None)
  Receive Date: 20080103
  Receipt Date: 20071221
  Transmission Date: 20080703
  Serious: Yes (Hospitalization)
  Sender: FDA-Public Use
  Company Number: FR-ASTRAZENECA-2007SE06797

PATIENT
  Age: 28199 Day
  Sex: Male

DRUGS (5)
  1. KENZEN [Suspect]
     Indication: HYPERTENSION
     Route: 048
  2. BISOPROLOL [Suspect]
     Indication: HYPERTENSION
     Route: 065
  3. NOVONORM [Concomitant]
     Indication: TYPE 2 DIABETES MELLITUS
     Route: 048
  4. MOPRAL [Concomitant]
     Indication: DRUG USE FOR UNKNOWN INDICATION
     Route: 048
  5. STAGID [Concomitant]
     Indication: TYPE 2 DIABETES MELLITUS
     Route: 048

REACTIONS (1)
  - ORTHOSTATIC HYPOTENSION [None]
